FAERS Safety Report 7752320-0 (Version None)
Quarter: 2011Q3

REPORT INFORMATION
  Report Type: 
  Country: None (occurrence: None)
  Receive Date: 20110915
  Receipt Date: 20110901
  Transmission Date: 20111222
  Serious: Yes (Disabling, Other)
  Sender: FDA-Public Use
  Company Number: BE-ELI_LILLY_AND_COMPANY-BE201109000789

PATIENT
  Sex: Male
  Weight: 115 kg

DRUGS (3)
  1. OLANZAPINE [Suspect]
     Indication: SCHIZOPHRENIA, PARANOID TYPE
     Dosage: 300 MG, EVERY 2 WEEKS
     Route: 030
     Dates: start: 20110809, end: 20110830
  2. MOVICOL                            /01625101/ [Concomitant]
     Indication: CONSTIPATION
     Dosage: UNK, QD
     Route: 048
     Dates: start: 20110822
  3. DIPIPERON [Concomitant]
     Indication: AGITATION
     Dosage: UNK UNK, TID
     Route: 048
     Dates: start: 20110728

REACTIONS (1)
  - INJECTION SITE ABSCESS [None]
